FAERS Safety Report 5097789-8 (Version None)
Quarter: 2006Q3

REPORT INFORMATION
  Report Type: 
  Country: None (occurrence: None)
  Receive Date: 20060731
  Receipt Date: 20060131
  Transmission Date: 20061208
  Serious: Yes (Life-Threatening, Hospitalization, Other)
  Sender: FDA-Public Use
  Company Number: 220534

PATIENT
  Age: 57 Year
  Sex: Female
  Weight: 57.6 kg

DRUGS (3)
  1. HERCEPTIN [Suspect]
     Indication: BREAST CANCER METASTATIC
     Dosage: 6 MG/KG, Q3W, INTRAVENOUS
     Route: 042
     Dates: start: 19980101, end: 20050901
  2. TRENTAL [Concomitant]
  3. MULTIVITAMIN [Concomitant]

REACTIONS (3)
  - HEPATIC FAILURE [None]
  - HEPATITIS ALCOHOLIC [None]
  - RENAL FAILURE [None]
